FAERS Safety Report 9773697 (Version 2)
Quarter: 2013Q4

REPORT INFORMATION
  Report Type: Spontaneous
  Country: US (occurrence: US)
  Receive Date: 20131219
  Receipt Date: 20131219
  Transmission Date: 20140711
  Serious: No
  Sender: FDA-Public Use
  Company Number: US-MYLANLABS-2013S1001159

PATIENT
  Age: 61 Year
  Sex: Female
  Weight: 95.26 kg

DRUGS (8)
  1. SOTRADECOL [Suspect]
     Indication: VARICOSE VEIN
     Route: 042
     Dates: start: 201208, end: 201208
  2. PULMICORT [Concomitant]
  3. POTASSIUM [Concomitant]
  4. SPIRONOLACTONE [Concomitant]
  5. FUROSEMIDE [Concomitant]
  6. ATENOLOL [Concomitant]
  7. METOLAZONE [Concomitant]
  8. AZELASTINE [Concomitant]

REACTIONS (2)
  - Hypersensitivity [Recovered/Resolved]
  - Muscle spasms [Recovered/Resolved]
